FAERS Safety Report 19195800 (Version 4)
Quarter: 2022Q4

REPORT INFORMATION
  Report Type: Spontaneous
  Country: FR (occurrence: FR)
  Receive Date: 20210429
  Receipt Date: 20221007
  Transmission Date: 20230112
  Serious: Yes (Hospitalization, Other)
  Sender: FDA-Public Use
  Company Number: NVSC2021FR066704

PATIENT
  Age: 53 Year
  Sex: Male

DRUGS (4)
  1. EVEROLIMUS [Suspect]
     Active Substance: EVEROLIMUS
     Indication: Immunosuppression
     Dosage: UNK
     Route: 065
  2. TACROLIMUS [Suspect]
     Active Substance: TACROLIMUS
     Indication: Liver transplant
     Dosage: 12.2 MG/L
     Route: 065
     Dates: start: 2019, end: 20200201
  3. TACROLIMUS [Suspect]
     Active Substance: TACROLIMUS
     Indication: Immunosuppressant drug therapy
  4. PANTOPRAZOLE [Suspect]
     Active Substance: PANTOPRAZOLE
     Indication: Hepatic artery stenosis
     Dosage: 20 MG
     Route: 065
     Dates: start: 2019, end: 20200201

REACTIONS (9)
  - Chondrocalcinosis [Recovered/Resolved]
  - Hypomagnesaemia [Not Recovered/Not Resolved]
  - Overdose [Unknown]
  - Condition aggravated [Recovered/Resolved]
  - Intervertebral discitis [Recovered/Resolved]
  - Product administration error [Recovered/Resolved]
  - Drug level increased [Unknown]
  - Oligoarthritis [Recovered/Resolved]
  - Product use in unapproved indication [Unknown]

NARRATIVE: CASE EVENT DATE: 20200101
